FAERS Safety Report 5745817-6 (Version None)
Quarter: 2008Q2

REPORT INFORMATION
  Report Type: 
  Country: None (occurrence: None)
  Receive Date: 20080521
  Receipt Date: 20080514
  Transmission Date: 20081010
  Serious: Yes (Other)
  Sender: FDA-Public Use
  Company Number: US-PFIZER INC-2008042587

PATIENT
  Sex: Male
  Weight: 113.6 kg

DRUGS (19)
  1. CHANTIX [Suspect]
     Indication: SMOKING CESSATION THERAPY
  2. CLONAZEPAM [Concomitant]
     Indication: ANXIETY
  3. CLONAZEPAM [Concomitant]
     Indication: DEPRESSION
  4. CYMBALTA [Concomitant]
     Indication: ANXIETY
  5. CYMBALTA [Concomitant]
     Indication: DEPRESSION
  6. LUNESTA [Concomitant]
     Indication: SLEEP DISORDER
  7. HYOSCYAMINE [Concomitant]
  8. DICYCLOMINE [Concomitant]
  9. CRESTOR [Concomitant]
  10. LYRICA [Concomitant]
  11. VITAMINS [Concomitant]
  12. PREVACID [Concomitant]
     Indication: GASTROOESOPHAGEAL REFLUX DISEASE
  13. PREVACID [Concomitant]
     Indication: IRRITABLE BOWEL SYNDROME
  14. ADVIL [Concomitant]
     Indication: BACK PAIN
  15. ADVIL PM [Concomitant]
     Indication: BACK PAIN
  16. ASCORBIC ACID [Concomitant]
  17. FISH OIL [Concomitant]
  18. FIBRE, DIETARY [Concomitant]
  19. INSULIN [Concomitant]
     Indication: DIABETES MELLITUS

REACTIONS (1)
  - BLOOD GLUCOSE INCREASED [None]
